FAERS Safety Report 8161826-4 (Version None)
Quarter: 2012Q1

REPORT INFORMATION
  Report Type: 
  Country: None (occurrence: None)
  Receive Date: 20120224
  Receipt Date: 20110629
  Transmission Date: 20120608
  Serious: No
  Sender: FDA-Public Use
  Company Number: US-BRISTOL-MYERS SQUIBB COMPANY-15865389

PATIENT
  Age: 65 Year
  Sex: Male

DRUGS (3)
  1. LANTUS [Concomitant]
  2. METFORMIN HCL [Suspect]
     Indication: DIABETES MELLITUS
     Dosage: METFORMIN HCL 500 MG TABS
     Route: 048
     Dates: end: 20110609
  3. SIMVASTATIN [Concomitant]

REACTIONS (1)
  - RASH [None]
